FAERS Safety Report 8788688 (Version 3)
Quarter: 2013Q1

REPORT INFORMATION
  Report Type: Spontaneous
  Country: BR (occurrence: BR)
  Receive Date: 20120915
  Receipt Date: 20130220
  Transmission Date: 20140127
  Serious: Yes (Hospitalization, Other)
  Sender: FDA-Public Use
  Company Number: BR-ABBOTT-12P-020-0977043-00

PATIENT
  Age: 3 Year
  Sex: Female
  Weight: 10 kg

DRUGS (12)
  1. DEPAKENE [Suspect]
     Indication: CONVULSION
     Route: 048
     Dates: start: 201206
  2. DEPAKENE [Suspect]
     Indication: CEREBROVASCULAR ACCIDENT
  3. INFLUENZA VACCINE [Suspect]
     Indication: PRODUCT USED FOR UNKNOWN INDICATION
     Dates: start: 201206
  4. PEDIASURE [Suspect]
     Indication: MEDICAL DIET
     Dosage: 5 OR 6 BABY BOTTLE DAILY
     Dates: start: 2009
  5. MOTILIUM [Concomitant]
     Indication: GASTROOESOPHAGEAL REFLUX DISEASE
     Dosage: 9 ML DAILY
     Route: 048
     Dates: start: 2009
  6. RIVOTRIL [Concomitant]
     Indication: CONVULSION
     Route: 060
     Dates: start: 2011
  7. RANITIDINE HYDROCHLORIDE [Concomitant]
     Indication: GASTROOESOPHAGEAL REFLUX DISEASE
     Route: 048
     Dates: start: 2011
  8. BACLOFEN [Concomitant]
     Indication: CONVULSION
     Dates: start: 2011
  9. GARDENAL [Concomitant]
     Indication: CONVULSION
     Route: 048
     Dates: start: 2011
  10. DOMPERIDONE MALEATE [Concomitant]
     Indication: PRODUCT USED FOR UNKNOWN INDICATION
  11. UNKNOWN MEDICATION [Concomitant]
     Indication: GASTRIC DISORDER
  12. ENTERAL [Concomitant]
     Route: 050

REACTIONS (3)
  - Gastrooesophageal reflux disease [Recovered/Resolved]
  - Gastric operation [Recovered/Resolved]
  - Bronchitis [Recovered/Resolved]
